FAERS Safety Report 5629722-1 (Version None)
Quarter: 2008Q1

REPORT INFORMATION
  Report Type: 
  Country: None (occurrence: None)
  Receive Date: 20080214
  Receipt Date: 20080130
  Transmission Date: 20080703
  Serious: Yes (Hospitalization)
  Sender: FDA-Public Use
  Company Number: IT-1165155

PATIENT
  Age: 85 Year
  Sex: Male

DRUGS (1)
  1. AZOPT [Suspect]
     Indication: OCULAR HYPERTENSION
     Dosage: 1 GTT OS TID, OPHTHALMIC
     Route: 047
     Dates: start: 20070718, end: 20070719

REACTIONS (4)
  - ANXIETY [None]
  - BLISTER [None]
  - BRADYCARDIA [None]
  - SCAB [None]
